FAERS Safety Report 7542000-9 (Version None)
Quarter: 2011Q2

REPORT INFORMATION
  Report Type: 
  Country: None (occurrence: None)
  Receive Date: 20110613
  Receipt Date: 20110526
  Transmission Date: 20111010
  Serious: No
  Sender: FDA-Public Use
  Company Number: US-B.I. PHARMACEUTICALS,INC./RIDGEFIELD-2011-BP-14071BP

PATIENT
  Sex: Male

DRUGS (5)
  1. SPIRONOLACTONE [Concomitant]
     Dosage: 25 MG
     Route: 048
     Dates: start: 20090101
  2. LISINOPRIL [Concomitant]
     Route: 048
     Dates: start: 20090101
  3. DEXILANT [Concomitant]
     Indication: GASTROOESOPHAGEAL REFLUX DISEASE
     Route: 048
     Dates: start: 20110101
  4. PRADAXA [Suspect]
     Indication: ATRIAL FIBRILLATION
     Dosage: 300 MG
     Route: 048
     Dates: start: 20110101
  5. FUROSEMIDE [Concomitant]
     Route: 048
     Dates: start: 20090101

REACTIONS (2)
  - HEADACHE [None]
  - DIZZINESS [None]
